FAERS Safety Report 18287201 (Version 2)
Quarter: 2021Q2

REPORT INFORMATION
  Report Type: Spontaneous
  Country: US (occurrence: US)
  Receive Date: 20200921
  Receipt Date: 20210419
  Transmission Date: 20210717
  Serious: Yes (Other)
  Sender: FDA-Public Use
  Company Number: US-SA-2020SA252619

PATIENT
  Age: 56 Year
  Sex: Female

DRUGS (1)
  1. ZANTAC [Suspect]
     Active Substance: RANITIDINE HYDROCHLORIDE
     Indication: DYSPEPSIA
     Dosage: 150 MG, QW
     Dates: start: 198001, end: 201801

REACTIONS (4)
  - Brain neoplasm [Recovering/Resolving]
  - Colorectal cancer stage II [Unknown]
  - Lung carcinoma cell type unspecified stage III [Unknown]
  - Ovarian cancer [Unknown]

NARRATIVE: CASE EVENT DATE: 19820101
